FAERS Safety Report 5793533-7 (Version None)
Quarter: 2008Q2

REPORT INFORMATION
  Report Type: 
  Country: None (occurrence: None)
  Receive Date: 20080627
  Receipt Date: 20080617
  Transmission Date: 20081010
  Serious: Yes (Other)
  Sender: FDA-Public Use
  Company Number: PHEH2008US05587

PATIENT
  Sex: Male

DRUGS (1)
  1. FEMARA [Suspect]
     Dosage: MATERNAL DOSE: 5 MG DAYS 3 THROUGH 7 OF EACH MENSTRUAL CYCLE

REACTIONS (2)
  - DRUG EXPOSURE BEFORE PREGNANCY [None]
  - PREMATURE BABY [None]
